FAERS Safety Report 14048644 (Version 3)
Quarter: 2017Q4

REPORT INFORMATION
  Report Type: Report from Study
  Country: ES (occurrence: ES)
  Receive Date: 20171005
  Receipt Date: 20171013
  Transmission Date: 20180321
  Serious: Yes (Hospitalization)
  Sender: FDA-Public Use
  Company Number: ES-B.I. PHARMACEUTICALS,INC./RIDGEFIELD-2017-BI-041732

PATIENT
  Age: 81 Year
  Sex: Female
  Weight: 78.8 kg

DRUGS (3)
  1. BIBW 2992 [Suspect]
     Active Substance: AFATINIB
     Route: 048
     Dates: start: 20160802, end: 20170607
  2. BIBW 2992 [Suspect]
     Active Substance: AFATINIB
     Route: 048
     Dates: end: 20170913
  3. BIBW 2992 [Suspect]
     Active Substance: AFATINIB
     Indication: BREAST CANCER
     Route: 048
     Dates: start: 20151211, end: 20160801

REACTIONS (4)
  - Pyrexia [Recovered/Resolved]
  - Cholecystitis acute [Recovered/Resolved]
  - Cholelithiasis [Not Recovered/Not Resolved]
  - Diarrhoea [Recovered/Resolved]

NARRATIVE: CASE EVENT DATE: 20170608
